FAERS Safety Report 12300410 (Version 1)
Quarter: 2016Q2

REPORT INFORMATION
  Report Type: Spontaneous
  Country: US (occurrence: US)
  Receive Date: 20160425
  Receipt Date: 20160425
  Transmission Date: 20160815
  Serious: No
  Sender: FDA-Public Use
  Company Number: US-BAUSCH-BL-2015-019573

PATIENT
  Sex: Male

DRUGS (2)
  1. CICLOPIROX SHAMPOO 1% [Suspect]
     Active Substance: CICLOPIROX
     Route: 061
     Dates: start: 20150708
  2. CICLOPIROX SHAMPOO 1% [Suspect]
     Active Substance: CICLOPIROX
     Indication: FUNGAL INFECTION
     Dosage: EVERY DAY FOR A WEEK
     Route: 061
     Dates: start: 20150708

REACTIONS (2)
  - Alopecia [Not Recovered/Not Resolved]
  - Off label use [Not Recovered/Not Resolved]
